FAERS Safety Report 6286735-7 (Version None)
Quarter: 2009Q3

REPORT INFORMATION
  Report Type: 
  Country: None (occurrence: None)
  Receive Date: 20090728
  Receipt Date: 20090720
  Transmission Date: 20100115
  Serious: Yes (Other)
  Sender: FDA-Public Use
  Company Number: US-BAYER-200912218BCC

PATIENT
  Age: 59 Year
  Sex: Male

DRUGS (3)
  1. ASPIRIN [Suspect]
     Indication: CORONARY ARTERIAL STENT INSERTION
     Route: 048
     Dates: start: 20080301
  2. CLOPIDOGREL [Suspect]
     Indication: CORONARY ARTERIAL STENT INSERTION
     Route: 048
     Dates: start: 20080301
  3. CURCUMIN [Concomitant]
     Route: 065

REACTIONS (4)
  - HAEMORRHAGE [None]
  - OPERATIVE HAEMORRHAGE [None]
  - SKIN HAEMORRHAGE [None]
  - STENT OCCLUSION [None]
